FAERS Safety Report 8847779 (Version 2)
Quarter: 2012Q4

REPORT INFORMATION
  Report Type: 
  Country: US (occurrence: US)
  Receive Date: 20121018
  Receipt Date: 20121129
  Transmission Date: 20130627
  Serious: Yes (Death)
  Sender: FDA-Public Use
  Company Number: US-CELGENEUS-163-22393-12072639

PATIENT
  Age: 88 None
  Sex: Female

DRUGS (2)
  1. ISTODAX [Suspect]
     Indication: CLL
     Dosage: 10 microgram/sq. meter
     Route: 041
     Dates: start: 20120425
  2. ISTODAX [Suspect]
     Dosage: 16.7 microgram/sq. meter
     Route: 041
     Dates: end: 20120614

REACTIONS (4)
  - Chronic lymphocytic leukaemia [Fatal]
  - Peripheral T-cell lymphoma unspecified [Fatal]
  - Cellulitis [Recovered/Resolved]
  - Restlessness [Unknown]
